FAERS Safety Report 9092647 (Version 1)
Quarter: 2013Q1

REPORT INFORMATION
  Report Type: Spontaneous
  Country: FR (occurrence: FR)
  Receive Date: 20130131
  Receipt Date: 20130131
  Transmission Date: 20140127
  Serious: Yes (Hospitalization)
  Sender: FDA-Public Use
  Company Number: FR-ASTRAZENECA-2013SE01703

PATIENT
  Age: 26146 Day
  Sex: Female
  Weight: 64 kg

DRUGS (2)
  1. HYTACAND [Suspect]
     Indication: HYPERTENSION
     Dosage: 16 MG / 12.5 MG, DAILY
     Route: 048
     Dates: start: 2003
  2. HYTACAND [Suspect]
     Indication: HYPERTENSION
     Dosage: 16 MG / 12.5 MG, DAILY
     Route: 048
     Dates: start: 20121217

REACTIONS (3)
  - Dizziness [Unknown]
  - Therapeutic product ineffective [Recovered/Resolved]
  - Blood pressure abnormal [Recovered/Resolved]
